FAERS Safety Report 15488611 (Version 2)
Quarter: 2018Q4

REPORT INFORMATION
  Report Type: Spontaneous
  Country: BE (occurrence: BE)
  Receive Date: 20181011
  Receipt Date: 20181012
  Transmission Date: 20190205
  Serious: Yes (Hospitalization, Other)
  Sender: FDA-Public Use
  Company Number: BE-PFIZER INC-2018403061

PATIENT
  Age: 70 Year
  Sex: Female

DRUGS (4)
  1. FLUOROURACIL. [Suspect]
     Active Substance: FLUOROURACIL
     Indication: METASTASES TO PERITONEUM
     Dosage: UNK
     Route: 042
     Dates: start: 201401
  2. GLUCOSE [Concomitant]
     Active Substance: DEXTROSE
     Indication: METASTASES TO PERITONEUM
     Dosage: UNK (5% GLUCOSE SOLUTION (2 L/M2), WAS ADMINISTERED FOR 30 MIN AT 41.5-43 DEGREE C)
     Route: 033
     Dates: start: 201401
  3. CALCIUM FOLINATE [Suspect]
     Active Substance: LEUCOVORIN CALCIUM
     Indication: METASTASES TO PERITONEUM
     Dosage: UNK
     Dates: start: 201401
  4. OXALIPLATIN. [Suspect]
     Active Substance: OXALIPLATIN
     Indication: METASTASES TO PERITONEUM
     Dosage: 460 MG/M2, UNK (DILUTED IN A 5% GLUCOSE SOLUTION (2 L/M2, ADMINISTERED FOR 30 MIN)
     Route: 033
     Dates: start: 201401

REACTIONS (1)
  - Encapsulating peritoneal sclerosis [Unknown]
